FAERS Safety Report 4940412-0 (Version None)
Quarter: 2006Q1

REPORT INFORMATION
  Report Type: 
  Country: None (occurrence: None)
  Receive Date: 20060127
  Receipt Date: 20050308
  Transmission Date: 20060701
  Serious: Yes (Other)
  Sender: FDA-Public Use
  Company Number: 200510968US

PATIENT
  Age: 93 Year
  Sex: Female
  Weight: 50 kg

DRUGS (9)
  1. AMARYL [Suspect]
     Dosage: 8 MG BID PO
     Route: 048
     Dates: start: 20040907, end: 20040907
  2. GALANTAMINE HYDROBROMIDE [Suspect]
     Indication: DEMENTIA
     Dosage: 8 MG BID PO
     Route: 048
     Dates: start: 20040824
  3. CARDIZEM CD [Concomitant]
  4. FERROUS SULFATE TAB [Concomitant]
  5. SODIUM BICARBONATE [Concomitant]
  6. DOCUSATE SODIUM (COLACE) [Concomitant]
  7. HEPARIN [Concomitant]
  8. QUETIAPINE FUMARATE (SEROQUEL) [Concomitant]
  9. HALOPERIDOL [Concomitant]

REACTIONS (4)
  - CONFUSIONAL STATE [None]
  - HYPOGLYCAEMIA [None]
  - MEDICATION ERROR [None]
  - SPEECH DISORDER [None]
